FAERS Safety Report 24280856 (Version 1)
Quarter: 2024Q3

REPORT INFORMATION
  Report Type: Spontaneous
  Country: ES (occurrence: ES)
  Receive Date: 20240904
  Receipt Date: 20240904
  Transmission Date: 20241016
  Serious: Yes (Other)
  Sender: AMGEN
  Company Number: ES-AMGEN-ESPSP2024174671

PATIENT

DRUGS (1)
  1. ADALIMUMAB [Suspect]
     Active Substance: ADALIMUMAB
     Indication: Exposure during pregnancy
     Dosage: UNK
     Route: 064

REACTIONS (17)
  - Foetal acidosis [Unknown]
  - Meconium aspiration syndrome [Unknown]
  - Pneumonia aspiration [Unknown]
  - Omphalitis [Unknown]
  - Pyelonephritis acute [Unknown]
  - Bronchiolitis [Unknown]
  - Patent ductus arteriosus [Unknown]
  - Skeletal dysplasia [Unknown]
  - Pyelocaliectasis [Unknown]
  - Small for dates baby [Unknown]
  - Single umbilical artery [Unknown]
  - Atrial septal defect [Unknown]
  - Chromosomal deletion [Unknown]
  - Premature baby [Unknown]
  - Foetal exposure during pregnancy [Unknown]
  - Enterovirus infection [Unknown]
  - Herpangina [Unknown]
